FAERS Safety Report 26151255 (Version 1)
Quarter: 2025Q4

REPORT INFORMATION
  Report Type: Spontaneous
  Country: JP (occurrence: JP)
  Receive Date: 20251212
  Receipt Date: 20251212
  Transmission Date: 20260117
  Serious: Yes (Hospitalization, Other)
  Sender: COSETTE PHARMACEUTICALS INC
  Company Number: JP-DSJP-DS-2025-180943-JP

PATIENT
  Age: 70 Year
  Sex: Female

DRUGS (1)
  1. EFFIENT [Suspect]
     Active Substance: PRASUGREL HYDROCHLORIDE
     Indication: Angina pectoris
     Dosage: UNKNOWN
     Route: 048

REACTIONS (3)
  - Shock haemorrhagic [Recovering/Resolving]
  - Mesenteric haemorrhage [Recovered/Resolved]
  - Road traffic accident [Unknown]
